FAERS Safety Report 11427884 (Version 1)
Quarter: 2015Q3

REPORT INFORMATION
  Report Type: Report from Study
  Country: IN (occurrence: IN)
  Receive Date: 20150828
  Receipt Date: 20150828
  Transmission Date: 20151125
  Serious: Yes (Death, Hospitalization)
  Sender: FDA-Public Use
  Company Number: IN-UNITED THERAPEUTICS LTD.-UTC-000491

PATIENT
  Age: 57 Year
  Sex: Female
  Weight: 59 kg

DRUGS (7)
  1. WARFARIN [Concomitant]
     Active Substance: WARFARIN
     Indication: PULMONARY ARTERIAL HYPERTENSION
  2. FUROSEMIDE W/SPIRONOLACTONE [Concomitant]
     Active Substance: FUROSEMIDE\SPIRONOLACTONE
     Indication: PULMONARY ARTERIAL HYPERTENSION
  3. UT-15C SR [Suspect]
     Active Substance: TREPROSTINIL DIOLAMINE
     Indication: PULMONARY ARTERIAL HYPERTENSION
     Route: 048
     Dates: start: 20081229
  4. PANTOPRAZOLE [Concomitant]
     Active Substance: PANTOPRAZOLE SODIUM
     Indication: DYSPEPSIA
  5. RAMIPRIL. [Concomitant]
     Active Substance: RAMIPRIL
     Indication: PULMONARY ARTERIAL HYPERTENSION
  6. ASPIRIN. [Concomitant]
     Active Substance: ASPIRIN
     Indication: PULMONARY ARTERIAL HYPERTENSION
  7. DILTIAZEM [Concomitant]
     Active Substance: DILTIAZEM
     Indication: PULMONARY ARTERIAL HYPERTENSION

REACTIONS (2)
  - Pulmonary hypertension [Fatal]
  - Pneumonitis [Fatal]

NARRATIVE: CASE EVENT DATE: 20090201
